FAERS Safety Report 9964434 (Version 1)
Quarter: 2014Q1

REPORT INFORMATION
  Report Type: Spontaneous
  Country: US (occurrence: US)
  Receive Date: 20140305
  Receipt Date: 20140305
  Transmission Date: 20141002
  Serious: Yes (Other)
  Sender: FDA-Public Use
  Company Number: US-PFIZER INC-2014062877

PATIENT
  Age: 54 Year
  Sex: Male
  Weight: 88.4 kg

DRUGS (1)
  1. LYRICA [Suspect]
     Indication: DIABETIC NEUROPATHY
     Dosage: 75 MG, 2X/DAY
     Dates: start: 2008, end: 2014

REACTIONS (2)
  - Diabetes mellitus [Unknown]
  - Diabetic neuropathy [Unknown]
